FAERS Safety Report 17929631 (Version 1)
Quarter: 2020Q2

REPORT INFORMATION
  Report Type: Spontaneous
  Country: US (occurrence: US)
  Receive Date: 20200623
  Receipt Date: 20200623
  Transmission Date: 20200714
  Serious: No
  Sender: FDA-Public Use
  Company Number: US-ALLERGAN-2010983US

PATIENT

DRUGS (2)
  1. KYBELLA [Suspect]
     Active Substance: DEOXYCHOLIC ACID
     Indication: FAT TISSUE INCREASED
     Dosage: 1 VIAL
     Route: 058
     Dates: start: 20200306, end: 20200306
  2. KYBELLA [Suspect]
     Active Substance: DEOXYCHOLIC ACID
     Dosage: 1 VIAL
     Route: 058
     Dates: start: 202001, end: 202001

REACTIONS (2)
  - Wrong technique in product usage process [Unknown]
  - Injection site nodule [Unknown]

NARRATIVE: CASE EVENT DATE: 2020
